FAERS Safety Report 13096843 (Version 2)
Quarter: 2017Q1

REPORT INFORMATION
  Report Type: Spontaneous
  Country: US (occurrence: US)
  Receive Date: 20170109
  Receipt Date: 20170127
  Transmission Date: 20170428
  Serious: Yes (Hospitalization, Other)
  Sender: FDA-Public Use
  Company Number: US-UNITED THERAPEUTICS-UNT-2016-020016

PATIENT
  Age: 52 Year
  Sex: Male
  Weight: 98.41 kg

DRUGS (3)
  1. ORENITRAM [Suspect]
     Active Substance: TREPROSTINIL
     Dosage: 2.5 MG, BID
     Route: 048
  2. ORENITRAM [Suspect]
     Active Substance: TREPROSTINIL
     Dosage: UNK
  3. ORENITRAM [Suspect]
     Active Substance: TREPROSTINIL
     Indication: PULMONARY ARTERIAL HYPERTENSION
     Dosage: 2.25 MG, BID
     Route: 048
     Dates: start: 20160908

REACTIONS (9)
  - Fluid retention [Unknown]
  - Weight increased [Unknown]
  - Epistaxis [Unknown]
  - Insomnia [Unknown]
  - Contusion [Unknown]
  - Exercise tolerance decreased [Unknown]
  - Thrombosis [Unknown]
  - Peripheral swelling [Unknown]
  - Scab [Unknown]

NARRATIVE: CASE EVENT DATE: 201612
